FAERS Safety Report 4432504-X (Version None)
Quarter: 2004Q3

REPORT INFORMATION
  Report Type: 
  Country: None (occurrence: None)
  Receive Date: 20040818
  Receipt Date: 20040806
  Transmission Date: 20050211
  Serious: Yes (Life-Threatening)
  Sender: FDA-Public Use
  Company Number: 2004S1000166

PATIENT
  Age: 51 Year
  Sex: Male
  Weight: 72 kg

DRUGS (21)
  1. CUBICIN [Suspect]
     Indication: BACTERAEMIA
     Dosage: 430 MG;Q24H;IV
     Route: 042
     Dates: start: 20040618, end: 20040805
  2. CUBICIN [Suspect]
     Indication: STAPHYLOCOCCAL INFECTION
     Dosage: 430 MG;Q24H;IV
     Route: 042
     Dates: start: 20040618, end: 20040805
  3. GENTAMYCIN SULFATE [Concomitant]
  4. ALBUTEROL [Concomitant]
  5. ASPIRIN [Concomitant]
  6. ENOXAPARIN SODIUM [Concomitant]
  7. FLUTICASONE PROPIONATE [Concomitant]
  8. FOLIC ACID [Concomitant]
  9. GABAPENTIN [Concomitant]
  10. GLYBURIDE [Concomitant]
  11. NOVOLIN N [Concomitant]
  12. NOVOLIN R [Concomitant]
  13. IPRATROPIUM BROMIDE [Concomitant]
  14. METFORIN [Concomitant]
  15. METHADONE HCL [Concomitant]
  16. METOPROLOL [Concomitant]
  17. NABUMETONE [Concomitant]
  18. NICOTINE TRANSDERMAL [Concomitant]
  19. OLANZAPINE [Concomitant]
  20. OMEPRAZOLE [Concomitant]
  21. SERTRALINE HCL [Concomitant]

REACTIONS (20)
  - ALANINE AMINOTRANSFERASE INCREASED [None]
  - ANAPHYLACTIC SHOCK [None]
  - ANGIONEUROTIC OEDEMA [None]
  - ARTHRALGIA [None]
  - ASPARTATE AMINOTRANSFERASE INCREASED [None]
  - BLOOD CREATINE PHOSPHOKINASE INCREASED [None]
  - BLOOD CREATINE PHOSPHOKINASE MB INCREASED [None]
  - BLOOD CREATININE INCREASED [None]
  - BLOOD PH DECREASED [None]
  - CARDIO-RESPIRATORY ARREST [None]
  - CATHETER RELATED COMPLICATION [None]
  - COMA [None]
  - ELECTROMECHANICAL DISSOCIATION [None]
  - FIBRIN D DIMER INCREASED [None]
  - JOINT EFFUSION [None]
  - JOINT SWELLING [None]
  - MEDICATION ERROR [None]
  - PULMONARY EMBOLISM [None]
  - RESPIRATORY ARREST [None]
  - STRIDOR [None]
